FAERS Safety Report 24024462 (Version 1)
Quarter: 2024Q2

REPORT INFORMATION
  Report Type: Report from Study
  Country: US (occurrence: US)
  Receive Date: 20240628
  Receipt Date: 20240628
  Transmission Date: 20240716
  Serious: No
  Sender: FDA-Public Use
  Company Number: US-ROCHE-3463667

PATIENT
  Age: 56 Year
  Sex: Female

DRUGS (1)
  1. PHESGO [Suspect]
     Active Substance: HYALURONIDASE-ZZXF\PERTUZUMAB\TRASTUZUMAB
     Indication: Malignant nipple neoplasm female
     Dosage: INJECT 1800MG SUBCUTANEOUSLY ONCE-LOADING DOSE.
     Route: 058

REACTIONS (2)
  - Product prescribing error [Unknown]
  - No adverse event [Unknown]
